FAERS Safety Report 5445930-7 (Version None)
Quarter: 2007Q3

REPORT INFORMATION
  Report Type: 
  Country: None (occurrence: None)
  Receive Date: 20070904
  Receipt Date: 20070820
  Transmission Date: 20080115
  Serious: Yes (Other)
  Sender: FDA-Public Use
  Company Number: DSJ-2007-06024

PATIENT
  Age: 81 Year
  Sex: Female

DRUGS (3)
  1. OLMESARTAN MEDOXOMIL [Suspect]
     Indication: HYPERTENSION
     Dosage: 10 MG, PER ORAL
     Route: 048
     Dates: start: 20070711, end: 20070810
  2. PRORENAL (LIMAPROST) (LIMAPROST) [Concomitant]
  3. LIPITOR (ATORVASTATIN CALCIUM) (ATORAVASTATIN CALCIUM) [Concomitant]

REACTIONS (1)
  - HEPATITIS ACUTE [None]
